FAERS Safety Report 12265493 (Version 1)
Quarter: 2016Q2

REPORT INFORMATION
  Report Type: Spontaneous
  Country: US (occurrence: US)
  Receive Date: 20160413
  Receipt Date: 20160413
  Transmission Date: 20160815
  Serious: No
  Sender: FDA-Public Use
  Company Number: US-BAYER-2016-066308

PATIENT
  Age: 83 Year
  Sex: Female
  Weight: 58.96 kg

DRUGS (7)
  1. MIRALAX [Suspect]
     Active Substance: POLYETHYLENE GLYCOL 3350
     Indication: CONSTIPATION
     Dosage: 1 DF, QD
     Route: 048
     Dates: start: 201603
  2. CRANBERRY. [Concomitant]
     Active Substance: CRANBERRY
  3. VITAMIN C [Concomitant]
     Active Substance: ASCORBIC ACID
     Dosage: UNK
  4. CALCIUM [Concomitant]
     Active Substance: CALCIUM
  5. GARLIC. [Concomitant]
     Active Substance: GARLIC
  6. FISH OIL [Concomitant]
     Active Substance: FISH OIL
  7. WOMEN^S MULTI [Concomitant]
     Dosage: UNK

REACTIONS (2)
  - Product use issue [None]
  - Drug ineffective [None]

NARRATIVE: CASE EVENT DATE: 201603
